FAERS Safety Report 21578557 (Version 1)
Quarter: 2022Q4

REPORT INFORMATION
  Report Type: Spontaneous
  Country: SI (occurrence: SI)
  Receive Date: 20221110
  Receipt Date: 20221110
  Transmission Date: 20230113
  Serious: Yes (Other)
  Sender: FDA-Public Use
  Company Number: SI-002147023-NVSC2022SI250530

PATIENT

DRUGS (2)
  1. RUXOLITINIB [Suspect]
     Active Substance: RUXOLITINIB
     Indication: Product used for unknown indication
     Dosage: 15 MG, BID, (2X)
     Route: 065
     Dates: start: 2017
  2. RUXOLITINIB [Suspect]
     Active Substance: RUXOLITINIB
     Dosage: 20 MG, BID, (2X1)
     Route: 065
     Dates: start: 2017

REACTIONS (8)
  - COVID-19 [Unknown]
  - Haemoglobin decreased [Unknown]
  - Herpes zoster [Unknown]
  - Pain in extremity [Unknown]
  - Post herpetic neuralgia [Unknown]
  - Squamous cell carcinoma of skin [Unknown]
  - Incorrect dose administered [Unknown]
  - Rash vesicular [Unknown]

NARRATIVE: CASE EVENT DATE: 20170101
